FAERS Safety Report 20452711 (Version 2)
Quarter: 2022Q1

REPORT INFORMATION
  Report Type: Spontaneous
  Country: DE (occurrence: DE)
  Receive Date: 20220210
  Receipt Date: 20220304
  Transmission Date: 20220423
  Serious: Yes (Hospitalization, Other)
  Sender: FDA-Public Use
  Company Number: DE-NOVARTISPH-NVSC2022DE025653

PATIENT
  Age: 85 Year
  Sex: Female

DRUGS (4)
  1. ENTRESTO [Suspect]
     Active Substance: SACUBITRIL\VALSARTAN
     Indication: Product used for unknown indication
     Dosage: UNK
     Route: 065
  2. ENTRESTO [Suspect]
     Active Substance: SACUBITRIL\VALSARTAN
     Dosage: 0.5 DOSAGE FORM, BID (? TABLET IN THE MORNING AND IN THE EVENING)
     Route: 065
     Dates: start: 202201, end: 20220201
  3. METOPROLOL [Suspect]
     Active Substance: METOPROLOL
     Indication: Product used for unknown indication
     Dosage: UNK
     Route: 065
     Dates: end: 20220201
  4. TORSEMIDE [Suspect]
     Active Substance: TORSEMIDE
     Indication: Product used for unknown indication
     Dosage: UNK
     Route: 065
     Dates: end: 20220201

REACTIONS (9)
  - Dyspnoea [Unknown]
  - Dementia [Unknown]
  - Cardiac output decreased [Unknown]
  - Hypersomnia [Unknown]
  - Decreased appetite [Unknown]
  - Dysstasia [Not Recovered/Not Resolved]
  - Listless [Not Recovered/Not Resolved]
  - Blood pressure decreased [Unknown]
  - Wrong technique in product usage process [Unknown]

NARRATIVE: CASE EVENT DATE: 20220101
